FAERS Safety Report 6922979-6 (Version None)
Quarter: 2010Q3

REPORT INFORMATION
  Report Type: 
  Country: None (occurrence: None)
  Receive Date: 20100813
  Receipt Date: 20100802
  Transmission Date: 20110219
  Serious: Yes (Hospitalization, Disabling)
  Sender: FDA-Public Use
  Company Number: FI-PFIZER INC-2010096425

PATIENT
  Age: 75 Year
  Sex: Male
  Weight: 68.1 kg

DRUGS (15)
  1. SALAZOPYRIN [Suspect]
     Indication: RHEUMATOID ARTHRITIS
     Dosage: 1000 MG, 2X/DAY
     Route: 048
     Dates: start: 20090710, end: 20091006
  2. SALAZOPYRIN [Suspect]
     Dosage: 500 MG, 2X/DAY
     Route: 048
     Dates: start: 19990101, end: 20090709
  3. RAMACE [Concomitant]
     Indication: HYPERTENSION
     Dosage: 5 MG, 1X/DAY
     Route: 048
     Dates: start: 20060919
  4. ADALAT [Concomitant]
     Indication: HYPERTENSION
     Dosage: 60 MG, 1X/DAY
     Route: 048
     Dates: start: 20060919
  5. PROCREN [Concomitant]
     Indication: PROSTATE CANCER
     Dosage: 11,25 MG EVERY SIX MONTHS
     Route: 058
     Dates: start: 20071024
  6. OMEPRAZOLE [Concomitant]
     Dosage: 20 MG, 1X/DAY
     Route: 048
     Dates: start: 20060905
  7. BETOLVEX [Concomitant]
     Dosage: 1 MG, 1X/DAY
  8. IDEOS [Concomitant]
     Dosage: 1 DOSE ONCE DAILY
  9. ZOMETA [Concomitant]
     Indication: PROSTATE CANCER
     Dosage: 4 MG, MONTHLY
     Dates: start: 20071001, end: 20091001
  10. PARA-TABS [Concomitant]
     Dosage: UNK
  11. PANACOD [Concomitant]
     Dosage: UNK
  12. ARTHROTEC [Concomitant]
     Dosage: UNK
  13. LYRICA [Concomitant]
     Dosage: UNK
  14. RETAFER [Concomitant]
     Dosage: 100 MG, 1X/DAY
     Dates: end: 20091201
  15. TRIOBE [Concomitant]
     Dosage: ONE DOSE ONCE DAILY

REACTIONS (1)
  - APLASIA PURE RED CELL [None]
